FAERS Safety Report 22013195 (Version 1)
Quarter: 2023Q1

REPORT INFORMATION
  Report Type: Spontaneous
  Country: US (occurrence: US)
  Receive Date: 20230220
  Receipt Date: 20230220
  Transmission Date: 20230418
  Serious: No
  Sender: FDA-Public Use
  Company Number: US-PFIZER INC-202300070359

PATIENT
  Sex: Female

DRUGS (1)
  1. LORAZEPAM [Suspect]
     Active Substance: LORAZEPAM
     Dosage: UNK (0.5 TOOK HALF A TABLET)

REACTIONS (6)
  - Anxiety [Unknown]
  - Panic reaction [Unknown]
  - Depression [Unknown]
  - Agitation [Unknown]
  - Tremor [Unknown]
  - Feeling abnormal [Unknown]
